FAERS Safety Report 25567547 (Version 2)
Quarter: 2025Q4

REPORT INFORMATION
  Report Type: Spontaneous
  Country: US (occurrence: US)
  Receive Date: 20250716
  Receipt Date: 20251014
  Transmission Date: 20260117
  Serious: Yes (Other)
  Sender: FENNEC PHARMACEUTICALS
  Company Number: US-FENNEC PHARMACEUTICALS, INC.-2025FEN00062

PATIENT
  Age: 71 Year
  Sex: Male
  Weight: 120.18 kg

DRUGS (3)
  1. PEDMARK [Suspect]
     Active Substance: SODIUM THIOSULFATE
     Indication: Chemotherapy side effect prophylaxis
     Dosage: 40 G (20 MG/M2) OVER 30 MINUTES/4VIALS PER INFUSION
     Route: 042
     Dates: start: 20250618, end: 20250618
  2. PEDMARK [Suspect]
     Active Substance: SODIUM THIOSULFATE
     Dosage: 40 GRAMS (20 MG/M2) OVER 30 MINUTES/4VIALS PER INFUSION
     Route: 042
     Dates: start: 20250710, end: 20250710
  3. UNSPECIFIED INGREDIENT [Suspect]
     Active Substance: UNSPECIFIED INGREDIENT

REACTIONS (7)
  - Blood pressure decreased [Recovered/Resolved]
  - Hyperhidrosis [Recovered/Resolved]
  - Headache [Unknown]
  - Dehydration [Recovering/Resolving]
  - Decreased appetite [Recovering/Resolving]
  - Nausea [Not Recovered/Not Resolved]
  - Off label use [Unknown]

NARRATIVE: CASE EVENT DATE: 20250618
